FAERS Safety Report 5206923-8 (Version None)
Quarter: 2007Q1

REPORT INFORMATION
  Report Type: 
  Country: None (occurrence: None)
  Receive Date: 20070105
  Receipt Date: 20070105
  Transmission Date: 20070707
  Serious: Yes (Hospitalization)
  Sender: FDA-Public Use
  Company Number: None

PATIENT
  Sex: Female

DRUGS (2)
  1. LABETALOL HCL [Suspect]
     Indication: HYPERTENSION
     Dosage: 200 MG Q AM +  400 MG Q HS  PO
     Route: 048
  2. FUROSEMIDE [Suspect]
     Dosage: 800 MG Q DAILY  PO
     Route: 048

REACTIONS (8)
  - CHEST PAIN [None]
  - CONDITION AGGRAVATED [None]
  - DYSPNOEA EXERTIONAL [None]
  - ECONOMIC PROBLEM [None]
  - HEADACHE [None]
  - HYPERTENSION [None]
  - OEDEMA PERIPHERAL [None]
  - TREATMENT NONCOMPLIANCE [None]
